FAERS Safety Report 15298430 (Version 1)
Quarter: 2018Q3

REPORT INFORMATION
  Report Type: Report from Study
  Country: CA (occurrence: CA)
  Receive Date: 20180820
  Receipt Date: 20180820
  Transmission Date: 20181010
  Serious: Yes (Other)
  Sender: FDA-Public Use
  Company Number: CA-TAKEDA-2018TUS025104

PATIENT
  Age: 50 Year
  Sex: Female

DRUGS (8)
  1. CEREBREX [Concomitant]
     Active Substance: CALCIUM GLYCEROPHOSPHATE\CALCIUM PHOSPHATE\GLUTAMIC ACID\VITAMIN B
     Dosage: UNK
  2. PREMARIN [Concomitant]
     Active Substance: ESTROGENS, CONJUGATED
     Dosage: 1.25 MG, QD
  3. TYLENOL [Concomitant]
     Active Substance: ACETAMINOPHEN
     Dosage: UNK
  4. SUMATRIPTAN MYLAN [Concomitant]
     Active Substance: SUMATRIPTAN
     Dosage: UNK
  5. MOTRIN [Concomitant]
     Active Substance: IBUPROFEN
     Dosage: UNK
  6. RATIO?LENOLTEC NO 1 [Concomitant]
     Dosage: UNK
  7. VEDOLIZUMAB [Suspect]
     Active Substance: VEDOLIZUMAB
     Indication: CROHN^S DISEASE
     Dosage: 300 MG, UNK
     Route: 042
     Dates: start: 20170606
  8. TEVA PROGESTERONE [Concomitant]
     Dosage: 200 MG, QD

REACTIONS (1)
  - Gallbladder disorder [Unknown]
